FAERS Safety Report 7534587-7 (Version None)
Quarter: 2011Q2

REPORT INFORMATION
  Report Type: 
  Country: None (occurrence: None)
  Receive Date: 20110609
  Receipt Date: 20091021
  Transmission Date: 20111010
  Serious: Yes (Death, Other)
  Sender: FDA-Public Use
  Company Number: PHHY2009DE10606

PATIENT
  Sex: Male
  Weight: 83 kg

DRUGS (2)
  1. CHEMOTHERAPEUTICS NOS [Concomitant]
  2. ZOMETA [Suspect]
     Indication: BONE DISORDER
     Dosage: 4 MG, QMO
     Route: 042
     Dates: start: 20071121, end: 20080331

REACTIONS (3)
  - LEUKAEMIA [None]
  - BONE PAIN [None]
  - PAIN IN EXTREMITY [None]
